FAERS Safety Report 5727993-4 (Version None)
Quarter: 2008Q2

REPORT INFORMATION
  Report Type: 
  Country: None (occurrence: None)
  Receive Date: 20080505
  Receipt Date: 20080501
  Transmission Date: 20081010
  Serious: Yes (Other)
  Sender: FDA-Public Use
  Company Number: JP-BOEHRINGER INGELHEIM GMBH, GERMANY-2008-BP-06346NB

PATIENT
  Sex: Male
  Weight: 66 kg

DRUGS (3)
  1. AGGRENOX [Suspect]
     Indication: CEREBROVASCULAR ACCIDENT PROPHYLAXIS
     Route: 048
     Dates: start: 20060921, end: 20080416
  2. BLOPRESS [Concomitant]
     Indication: HYPERTENSION
     Route: 048
  3. DAONIL [Concomitant]
     Indication: DIABETES MELLITUS
     Route: 048

REACTIONS (2)
  - DIABETIC RETINOPATHY [None]
  - VITREOUS HAEMORRHAGE [None]
